APPROVED DRUG PRODUCT: SODIUM CHLORIDE 0.9% IN PLASTIC CONTAINER
Active Ingredient: SODIUM CHLORIDE
Strength: 27MG/3ML (9MG/ML)
Dosage Form/Route: SOLUTION;INJECTION
Application: N018803 | Product #005
Applicant: HOSPIRA INC
Approved: Jan 22, 2015 | RLD: Yes | RS: No | Type: DISCN